FAERS Safety Report 9922823 (Version 1)
Quarter: 2014Q1

REPORT INFORMATION
  Report Type: Spontaneous
  Country: US (occurrence: US)
  Receive Date: 20140225
  Receipt Date: 20140225
  Transmission Date: 20141002
  Serious: Yes (Other)
  Sender: FDA-Public Use
  Company Number: US-ENDO PHARMACEUTICALS INC.-POTA20140001

PATIENT
  Age: 12 Year
  Sex: Male

DRUGS (1)
  1. POTASSIUM CHLORIDE ORAL SOLUTION .10 [Suspect]
     Indication: PRODUCT USED FOR UNKNOWN INDICATION
     Dosage: 10%, 3.75ML (5MEQ) DILUTED IN 10ML OF WATER
     Route: 050

REACTIONS (2)
  - Blister [Not Recovered/Not Resolved]
  - Skin lesion [Not Recovered/Not Resolved]
